FAERS Safety Report 23739227 (Version 1)
Quarter: 2024Q2

REPORT INFORMATION
  Report Type: Report from Study
  Country: US (occurrence: US)
  Receive Date: 20240413
  Receipt Date: 20240413
  Transmission Date: 20240716
  Serious: Yes (Hospitalization)
  Sender: FDA-Public Use
  Company Number: US-ABBVIE-5705739

PATIENT
  Age: 58 Year
  Sex: Female
  Weight: 104 kg

DRUGS (5)
  1. SKYRIZI [Suspect]
     Active Substance: RISANKIZUMAB-RZAA
     Indication: Psoriasis
     Dosage: FORM STRENGTH WAS 150 MILLIGRAMS
     Route: 058
     Dates: start: 20231001, end: 20231001
  2. SKYRIZI [Suspect]
     Active Substance: RISANKIZUMAB-RZAA
     Indication: Psoriatic arthropathy
     Dosage: FORM STRENGTH WAS 150 MILLIGRAMS
     Route: 058
     Dates: start: 20240105, end: 20240105
  3. LOSARTAN [Concomitant]
     Active Substance: LOSARTAN
     Indication: Hypertension
  4. NAPROXEN [Concomitant]
     Active Substance: NAPROXEN
     Indication: Pain
  5. OZEMPIC [Concomitant]
     Active Substance: SEMAGLUTIDE
     Indication: Blood glucose increased

REACTIONS (14)
  - Cardiac failure congestive [Recovering/Resolving]
  - Influenza [Recovered/Resolved]
  - Therapeutic product effect incomplete [Not Recovered/Not Resolved]
  - Malaise [Recovered/Resolved]
  - Peripheral swelling [Recovering/Resolving]
  - Tooth abscess [Recovered/Resolved]
  - Fluid retention [Recovering/Resolving]
  - Blood pressure increased [Recovered/Resolved]
  - Skin infection [Recovered/Resolved]
  - Illness [Recovered/Resolved]
  - Cellulitis [Recovered/Resolved]
  - Generalised oedema [Recovering/Resolving]
  - Immunodeficiency [Recovering/Resolving]
  - Peripheral swelling [Not Recovered/Not Resolved]

NARRATIVE: CASE EVENT DATE: 20231030
